FAERS Safety Report 6742775-2 (Version None)
Quarter: 2010Q2

REPORT INFORMATION
  Report Type: 
  Country: None (occurrence: None)
  Receive Date: 20100525
  Receipt Date: 20100513
  Transmission Date: 20101027
  Serious: Yes (Other)
  Sender: FDA-Public Use
  Company Number: 009573

PATIENT
  Sex: Male

DRUGS (4)
  1. CIMZIA [Suspect]
     Indication: CROHN'S DISEASE
     Dosage: 400 MG 1X/MONTH SUBCUTANEOUS
     Route: 058
     Dates: start: 20090601, end: 20100301
  2. AZATHIOPRINE SODIUM [Suspect]
     Indication: CROHN'S DISEASE
     Dosage: 50 MG, 3 AND 1/2 DAILY ORAL
     Route: 048
     Dates: start: 20070101
  3. LEXAPRO [Concomitant]
  4. CARBIDOPA + LEVODOPA [Concomitant]

REACTIONS (2)
  - MALIGNANT MELANOMA [None]
  - METASTASES TO LYMPH NODES [None]
